FAERS Safety Report 6973554-9 (Version None)
Quarter: 2010Q3

REPORT INFORMATION
  Report Type: 
  Country: None (occurrence: None)
  Receive Date: 20100909
  Receipt Date: 20100820
  Transmission Date: 20110219
  Serious: Yes (Other)
  Sender: FDA-Public Use
  Company Number: B0673600A

PATIENT
  Age: 48 Year
  Sex: Male

DRUGS (2)
  1. ALLI [Suspect]
     Dosage: 60MG TWICE PER DAY
     Route: 048
     Dates: start: 20100715, end: 20100816
  2. HYPERTENSION MED [Concomitant]
     Route: 065

REACTIONS (2)
  - HEPATIC ENZYME INCREASED [None]
  - OEDEMA PERIPHERAL [None]
